FAERS Safety Report 24664216 (Version 2)
Quarter: 2024Q4

REPORT INFORMATION
  Report Type: Spontaneous
  Country: HU (occurrence: HU)
  Receive Date: 20241126
  Receipt Date: 20241216
  Transmission Date: 20250115
  Serious: Yes (Other)
  Sender: NOVARTIS
  Company Number: HU-002147023-NVSC2024HU224821

PATIENT
  Age: 25 Day
  Sex: Male
  Weight: 3.94 kg

DRUGS (13)
  1. ZOLGENSMA [Suspect]
     Active Substance: ONASEMNOGENE ABEPARVOVEC-XIOI
     Indication: Spinal muscular atrophy
     Dosage: UNK, ONCE/SINGLE (1X24.8 ML, 3X 8.3 ML/ 1.1 ? 1014 VG/KG BODY WEIGHT)
     Route: 042
     Dates: start: 20240725, end: 20240725
  2. Rindex [Concomitant]
     Indication: Fluid replacement
     Dosage: 350 ML, Q24H
     Route: 042
     Dates: start: 20240725, end: 20240726
  3. SODIUM CHLORIDE [Concomitant]
     Active Substance: SODIUM CHLORIDE
     Indication: Fluid replacement
     Dosage: 20 ML
     Route: 042
     Dates: start: 20240725, end: 20240725
  4. ALBUTEROL SULFATE [Concomitant]
     Active Substance: ALBUTEROL SULFATE
     Indication: Fluid replacement
     Dosage: 50 ML
     Route: 042
     Dates: start: 20240725, end: 20240725
  5. ALBUTEROL SULFATE [Concomitant]
     Active Substance: ALBUTEROL SULFATE
     Dosage: 50 ML
     Route: 042
     Dates: start: 20240726, end: 20240726
  6. PREDNISOLONE [Concomitant]
     Active Substance: PREDNISOLONE
     Indication: Immunosuppression
     Dosage: 4 MG, QD
     Route: 054
     Dates: start: 20240724, end: 20240724
  7. PREDNISOLONE [Concomitant]
     Active Substance: PREDNISOLONE
     Indication: Thrombotic microangiopathy
     Dosage: 3.5 MG, QD
     Route: 054
     Dates: start: 20240822, end: 20240828
  8. PREDNISOLONE [Concomitant]
     Active Substance: PREDNISOLONE
     Indication: Gene therapy
     Dosage: 3 MG, QD
     Route: 054
     Dates: start: 20240829, end: 20240905
  9. PREDNISOLONE [Concomitant]
     Active Substance: PREDNISOLONE
     Dosage: 2 MG, QD
     Route: 054
     Dates: start: 20240906, end: 20240912
  10. PREDNISOLONE [Concomitant]
     Active Substance: PREDNISOLONE
     Dosage: 1 MG, QD
     Route: 054
     Dates: start: 20240913, end: 20240919
  11. FAMOTIDINE [Concomitant]
     Active Substance: FAMOTIDINE
     Indication: Prophylaxis
     Dosage: 2 MG, BID
     Route: 048
     Dates: start: 20240724, end: 20240821
  12. FAMOTIDINE [Concomitant]
     Active Substance: FAMOTIDINE
     Indication: Gastrointestinal disorder
     Dosage: 2.5 MG, BID
     Route: 048
     Dates: start: 20240824, end: 20240919
  13. VITAMIN D [Concomitant]
     Active Substance: VITAMIN D NOS
     Indication: Bone disorder
     Dosage: 2 DRP, QD (2 DROPS/100 0 IU)
     Route: 048
     Dates: start: 20240724

REACTIONS (8)
  - Blood lactate dehydrogenase increased [Recovered/Resolved]
  - Pyrexia [Recovered/Resolved]
  - Decreased appetite [Recovered/Resolved]
  - Red blood cell schistocytes present [Recovered/Resolved]
  - Blood creatine phosphokinase increased [Recovering/Resolving]
  - Troponin I increased [Recovered/Resolved]
  - Eczema [Recovering/Resolving]
  - Renal disorder [Not Recovered/Not Resolved]

NARRATIVE: CASE EVENT DATE: 20240101
